FAERS Safety Report 9833531 (Version 1)
Quarter: 2014Q1

REPORT INFORMATION
  Report Type: Spontaneous
  Country: GB (occurrence: GB)
  Receive Date: 20140122
  Receipt Date: 20140122
  Transmission Date: 20141002
  Serious: Yes (Other)
  Sender: FDA-Public Use
  Company Number: GB-ACCORD-021347

PATIENT
  Age: 53 Year
  Sex: Female
  Weight: 85 kg

DRUGS (1)
  1. ALLOPURINOL/ALLOPURINOL SODIUM [Suspect]
     Indication: GOUT
     Route: 048

REACTIONS (3)
  - Lymphadenopathy [Recovered/Resolved]
  - Dizziness postural [Recovered/Resolved]
  - Pain [Recovered/Resolved]
